FAERS Safety Report 8214115-3 (Version None)
Quarter: 2012Q1

REPORT INFORMATION
  Report Type: 
  Country: None (occurrence: None)
  Receive Date: 20120314
  Receipt Date: 20120314
  Transmission Date: 20120608
  Serious: Yes (Hospitalization)
  Sender: FDA-Public Use
  Company Number: None

PATIENT
  Age: 60 Year
  Sex: Male
  Weight: 89 kg

DRUGS (9)
  1. REMERON [Concomitant]
  2. METOPROLOL SUCCINATE [Concomitant]
  3. MEGACE [Concomitant]
  4. REGLAN [Concomitant]
  5. MAG-OX [Concomitant]
  6. OXYCODONE HCL [Concomitant]
  7. WARFARIN SODIUM [Suspect]
     Indication: ATRIAL FIBRILLATION
     Dosage: 1MG/2MG 4 DAY WK/3 DAY WK PO CHRONIC
     Route: 048
  8. AMIODARONE HYDROCHLORIDE [Suspect]
     Indication: ATRIAL FIBRILLATION
     Dosage: 200MG DAILY PO  CHRONIC
     Route: 048
  9. PHENERGAN [Concomitant]

REACTIONS (5)
  - PRESYNCOPE [None]
  - PROTHROMBIN TIME PROLONGED [None]
  - INTERNATIONAL NORMALISED RATIO INCREASED [None]
  - GASTRIC VARICES HAEMORRHAGE [None]
  - HAEMORRHAGIC ANAEMIA [None]
